FAERS Safety Report 4568080-0 (Version None)
Quarter: 2005Q1

REPORT INFORMATION
  Report Type: 
  Country: None (occurrence: None)
  Receive Date: 20050128
  Receipt Date: 20041130
  Transmission Date: 20050727
  Serious: Yes (Other)
  Sender: FDA-Public Use
  Company Number: 2005018065

PATIENT
  Sex: Female

DRUGS (2)
  1. BEXTRA [Suspect]
     Indication: ILL-DEFINED DISORDER
  2. CELEBREX [Suspect]
     Indication: ILL-DEFINED DISORDER

REACTIONS (5)
  - ANURIA [None]
  - CHROMATURIA [None]
  - INFECTION [None]
  - POISONING [None]
  - RENAL FAILURE ACUTE [None]
